APPROVED DRUG PRODUCT: ABIRATERONE ACETATE
Active Ingredient: ABIRATERONE ACETATE
Strength: 500MG
Dosage Form/Route: TABLET;ORAL
Application: A210726 | Product #001
Applicant: TEVA PHARMACEUTICALS USA INC
Approved: Jan 26, 2023 | RLD: No | RS: No | Type: DISCN